FAERS Safety Report 4801754-2 (Version None)
Quarter: 2005Q4

REPORT INFORMATION
  Report Type: 
  Country: None (occurrence: None)
  Receive Date: 20051011
  Receipt Date: 20050926
  Transmission Date: 20060501
  Serious: Yes (Other)
  Sender: FDA-Public Use
  Company Number: 2005EN000358

PATIENT
  Age: 4 Year
  Sex: Female

DRUGS (1)
  1. ONCASPAR [Suspect]
     Indication: ACUTE LYMPHOCYTIC LEUKAEMIA

REACTIONS (4)
  - BRAIN DEATH [None]
  - CEREBROVASCULAR ACCIDENT [None]
  - HEPATIC FAILURE [None]
  - PANCREATITIS [None]
